FAERS Safety Report 24178275 (Version 1)
Quarter: 2024Q3

REPORT INFORMATION
  Report Type: Report from Study
  Country: US (occurrence: US)
  Receive Date: 20240806
  Receipt Date: 20240806
  Transmission Date: 20241017
  Serious: Yes (Hospitalization, Other)
  Sender: BIOGEN
  Company Number: US-BIOGEN-2024BI01276466

PATIENT
  Age: 62 Year
  Sex: Female

DRUGS (1)
  1. VUMERITY [Suspect]
     Active Substance: DIROXIMEL FUMARATE
     Indication: Multiple sclerosis
     Route: 050
     Dates: start: 20200609

REACTIONS (8)
  - Colon cancer stage III [Recovered/Resolved]
  - Gastrointestinal procedural complication [Recovered/Resolved]
  - Severe acute respiratory syndrome [Recovered/Resolved]
  - Incisional hernia [Recovered/Resolved]
  - Uterine cancer [Recovered/Resolved]
  - Lymphoma [Not Recovered/Not Resolved]
  - Thrombosis [Recovered/Resolved]
  - Weight decreased [Not Recovered/Not Resolved]

NARRATIVE: CASE EVENT DATE: 20211001
